FAERS Safety Report 6543512-7 (Version None)
Quarter: 2010Q1

REPORT INFORMATION
  Report Type: 
  Country: None (occurrence: None)
  Receive Date: 20100120
  Receipt Date: 20100114
  Transmission Date: 20100710
  Serious: Yes (Hospitalization)
  Sender: FDA-Public Use
  Company Number: B0625713A

PATIENT
  Sex: Female

DRUGS (4)
  1. AUGMENTIN [Suspect]
     Indication: ACUTE SINUSITIS
     Dosage: 1G THREE TIMES PER DAY
     Route: 048
     Dates: start: 20090512, end: 20090501
  2. PYOSTACINE [Concomitant]
     Indication: INFLUENZA LIKE ILLNESS
     Dosage: 1G TWICE PER DAY
     Route: 065
     Dates: start: 20090515
  3. TAVANIC [Concomitant]
     Indication: INFLUENZA LIKE ILLNESS
     Route: 065
     Dates: start: 20090520
  4. PARACETAMOL [Concomitant]
     Route: 065
     Dates: start: 20090514

REACTIONS (10)
  - ACUTE GENERALISED EXANTHEMATOUS PUSTULOSIS [None]
  - ASTHENIA [None]
  - CHILLS [None]
  - DIZZINESS [None]
  - HYPERHIDROSIS [None]
  - PYREXIA [None]
  - RASH ERYTHEMATOUS [None]
  - RASH MORBILLIFORM [None]
  - RASH PUSTULAR [None]
  - SKIN EXFOLIATION [None]
